FAERS Safety Report 4800401-3 (Version None)
Quarter: 2005Q4

REPORT INFORMATION
  Report Type: 
  Country: None (occurrence: None)
  Receive Date: 20051013
  Receipt Date: 20050923
  Transmission Date: 20060501
  Serious: Yes (Death)
  Sender: FDA-Public Use
  Company Number: GBS050617689

PATIENT
  Age: 84 Year
  Sex: Male

DRUGS (10)
  1. CYMBALTA [Suspect]
     Dosage: 60 MG DAY
     Dates: start: 20050502
  2. ZIMOVANE (ZOPICLONE) [Concomitant]
  3. CENTYL K [Concomitant]
  4. LAMICTAL [Concomitant]
  5. CLONAZEPAM [Concomitant]
  6. SULPIRIDE [Concomitant]
  7. DIFENE (DICLOFENAC SODIUM) [Concomitant]
  8. MOVICOL [Concomitant]
  9. LACTULOSE [Concomitant]
  10. MULTI-VITAMINS [Concomitant]

REACTIONS (10)
  - BLOOD ALKALINE PHOSPHATASE INCREASED [None]
  - BLOOD BILIRUBIN INCREASED [None]
  - C-REACTIVE PROTEIN INCREASED [None]
  - CARDIAC ARREST [None]
  - GAMMA-GLUTAMYLTRANSFERASE INCREASED [None]
  - GASTROINTESTINAL HAEMORRHAGE [None]
  - HAEMOGLOBIN DECREASED [None]
  - HYPOVOLAEMIC SHOCK [None]
  - RESPIRATORY TRACT INFECTION [None]
  - SUDDEN DEATH [None]
